FAERS Safety Report 6084893-0 (Version None)
Quarter: 2009Q1

REPORT INFORMATION
  Report Type: 
  Country: None (occurrence: None)
  Receive Date: 20090220
  Receipt Date: 20090211
  Transmission Date: 20090719
  Serious: Yes (Other)
  Sender: FDA-Public Use
  Company Number: PHEH2009US00752

PATIENT
  Sex: Female

DRUGS (1)
  1. GENTEAL GEL (NVO) [Suspect]
     Dosage: UNK, EVERY NIGHT

REACTIONS (2)
  - EYE IRRITATION [None]
  - GLAUCOMA [None]
